FAERS Safety Report 4955094-1 (Version None)
Quarter: 2006Q1

REPORT INFORMATION
  Report Type: 
  Country: None (occurrence: None)
  Receive Date: 20060322
  Receipt Date: 20060302
  Transmission Date: 20060701
  Serious: Yes (Other)
  Sender: FDA-Public Use
  Company Number: US200603000870

PATIENT
  Age: 85 Year
  Sex: Female

DRUGS (12)
  1. FORTEO [Suspect]
     Indication: OSTEOPOROSIS
     Dates: start: 20030101, end: 20050101
  2. FORTEO [Concomitant]
  3. NORVASC /DEN/ (AMLODIPINE BESILATE) [Concomitant]
  4. PRINIVIL [Concomitant]
  5. BETAPACE [Concomitant]
  6. BALMEX OINTMENT (BISMUTH SUBNITRATE, DIMETICONE, ERGOCALCIFEROL, PERUV [Concomitant]
  7. LIPITOR [Concomitant]
  8. PREVACID [Concomitant]
  9. SYNTHROID [Concomitant]
  10. ULTRACET [Concomitant]
  11. NITRO PATCH (GLYCERYL TRINITRATE) [Concomitant]
  12. ZOLOFT [Concomitant]

REACTIONS (2)
  - BREAST CANCER [None]
  - LYMPHOEDEMA [None]
